FAERS Safety Report 11215349 (Version 1)
Quarter: 2015Q2

REPORT INFORMATION
  Report Type: Spontaneous
  Country: US (occurrence: US)
  Receive Date: 20150624
  Receipt Date: 20150624
  Transmission Date: 20150821
  Serious: Yes (Other)
  Sender: FDA-Public Use
  Company Number: US-TEVA-572782USA

PATIENT
  Age: 78 Year
  Sex: Female
  Weight: 81 kg

DRUGS (5)
  1. LYRICA [Suspect]
     Active Substance: PREGABALIN
     Indication: MUSCLE SPASMS
  2. ATENOLOL. [Concomitant]
     Active Substance: ATENOLOL
  3. LYRICA [Suspect]
     Active Substance: PREGABALIN
     Indication: BLEPHAROSPASM
  4. BACLOFEN. [Suspect]
     Active Substance: BACLOFEN
     Indication: HERPES ZOSTER
     Dosage: 60 MILLIGRAM DAILY;
     Route: 048
  5. LYRICA [Suspect]
     Active Substance: PREGABALIN
     Indication: HERPES ZOSTER
     Dosage: 450 MILLIGRAM DAILY;
     Route: 048
     Dates: start: 2008

REACTIONS (7)
  - Burning sensation [Unknown]
  - Hypoaesthesia [Unknown]
  - Diabetes mellitus [Unknown]
  - Herpes zoster [Unknown]
  - Pain [Unknown]
  - Eye pain [Unknown]
  - Somnolence [Unknown]

NARRATIVE: CASE EVENT DATE: 201208
